FAERS Safety Report 7807635-4 (Version None)
Quarter: 2011Q4

REPORT INFORMATION
  Report Type: 
  Country: None (occurrence: None)
  Receive Date: 20111011
  Receipt Date: 20111005
  Transmission Date: 20120403
  Serious: Yes (Other)
  Sender: FDA-Public Use
  Company Number: GB-PFIZER INC-2011199019

PATIENT
  Age: 17 Year
  Sex: Female

DRUGS (2)
  1. SERTRALINE HYDROCHLORIDE [Suspect]
     Indication: DEPRESSIVE SYMPTOM
  2. SERTRALINE HYDROCHLORIDE [Suspect]
     Indication: OBSESSIVE-COMPULSIVE DISORDER
     Dosage: 25 MG, UNK

REACTIONS (4)
  - APHAGIA [None]
  - TOOTHACHE [None]
  - ORAL PAIN [None]
  - SOMNOLENCE [None]
